FAERS Safety Report 16689741 (Version 3)
Quarter: 2020Q4

REPORT INFORMATION
  Report Type: Spontaneous
  Country: LB (occurrence: LB)
  Receive Date: 20190809
  Receipt Date: 20201002
  Transmission Date: 20210113
  Serious: Yes (Hospitalization, Other)
  Sender: FDA-Public Use
  Company Number: LB-BRISTOL-MYERS SQUIBB COMPANY-BMS-2019-070826

PATIENT
  Age: 68 Year
  Sex: Female

DRUGS (2)
  1. OPDIVO [Suspect]
     Active Substance: NIVOLUMAB
     Indication: LUNG NEOPLASM MALIGNANT
     Dosage: 240 MILLIGRAM, Q4WK
     Route: 042
  2. OPDIVO [Suspect]
     Active Substance: NIVOLUMAB
     Dosage: 240 MILLIGRAM, Q2WK
     Route: 042

REACTIONS (7)
  - Pneumonia [Unknown]
  - Fatigue [Unknown]
  - Dyspnoea [Unknown]
  - Gait disturbance [Unknown]
  - Malignant neoplasm progression [Unknown]
  - Hepatic cancer [Unknown]
  - Off label use [Unknown]

NARRATIVE: CASE EVENT DATE: 2019
